FAERS Safety Report 25183620 (Version 1)
Quarter: 2025Q2

REPORT INFORMATION
  Report Type: Report from Study
  Country: ID (occurrence: ID)
  Receive Date: 20250410
  Receipt Date: 20250410
  Transmission Date: 20250716
  Serious: Yes (Death)
  Sender: PFIZER
  Company Number: ID-PFIZER INC-PV202500042199

PATIENT

DRUGS (1)
  1. SUNITINIB MALATE [Suspect]
     Active Substance: SUNITINIB MALATE

REACTIONS (1)
  - Death [Fatal]
